FAERS Safety Report 4277925-3 (Version None)
Quarter: 2004Q1

REPORT INFORMATION
  Report Type: 
  Country: None (occurrence: None)
  Receive Date: 20040123
  Receipt Date: 20031125
  Transmission Date: 20041129
  Serious: Yes (Death, Life-Threatening, Hospitalization)
  Sender: FDA-Public Use
  Company Number: DE-GLAXOSMITHKLINE-D0042493A

PATIENT
  Age: 49 Year
  Sex: Female

DRUGS (2)
  1. LAMICTAL [Suspect]
     Indication: EPILEPSY
     Dosage: 25MG PER DAY
     Route: 048
     Dates: start: 20031104, end: 20031112
  2. ERGENYL [Suspect]
     Indication: EPILEPSY
     Dosage: 250MG TWICE PER DAY
     Route: 048

REACTIONS (33)
  - ACTIVATED PARTIAL THROMBOPLASTIN TIME PROLONGED [None]
  - ALANINE AMINOTRANSFERASE INCREASED [None]
  - BLOOD LACTATE DEHYDROGENASE INCREASED [None]
  - C-REACTIVE PROTEIN INCREASED [None]
  - CARDIAC ARREST [None]
  - CEREBRAL HAEMORRHAGE [None]
  - CONVULSION [None]
  - DIPLOPIA [None]
  - DISSEMINATED INTRAVASCULAR COAGULATION [None]
  - DIZZINESS [None]
  - DRUG INTERACTION [None]
  - DRUG TOXICITY [None]
  - DYSPNOEA [None]
  - GENERALISED OEDEMA [None]
  - HEPATIC FAILURE [None]
  - INFECTION [None]
  - KLEBSIELLA INFECTION [None]
  - LEUKOPENIA [None]
  - MALAISE [None]
  - MULTI-ORGAN FAILURE [None]
  - MYDRIASIS [None]
  - MYOCARDIAC ABSCESS [None]
  - MYOCARDITIS [None]
  - PETECHIAE [None]
  - PROTHROMBIN TIME SHORTENED [None]
  - PYREXIA [None]
  - RENAL ABSCESS [None]
  - RENAL FAILURE ACUTE [None]
  - RESPIRATORY FAILURE [None]
  - SEPSIS [None]
  - SOMNOLENCE [None]
  - SPLENIC ABSCESS [None]
  - THROMBOCYTOPENIA [None]
